FAERS Safety Report 7435030-9 (Version None)
Quarter: 2011Q2

REPORT INFORMATION
  Report Type: 
  Country: None (occurrence: None)
  Receive Date: 20110418
  Receipt Date: 20110405
  Transmission Date: 20111010
  Serious: Yes (Other)
  Sender: FDA-Public Use
  Company Number: JPI-P-014480

PATIENT
  Age: 30 Year
  Sex: Female
  Weight: 120.6568 kg

DRUGS (10)
  1. FLUTICASONE [Concomitant]
  2. ALBUTEROL [Concomitant]
  3. OMEPRAZOLE [Concomitant]
  4. XYREM [Suspect]
     Indication: SOMNOLENCE
     Dosage: (,2 IN 1 D) ,ORAL, 7 GM (3.5 GM,2 IN 1 D),ORAL
     Route: 048
     Dates: start: 20071112
  5. XYREM [Suspect]
     Indication: NARCOLEPSY
     Dosage: (,2 IN 1 D) ,ORAL, 7 GM (3.5 GM,2 IN 1 D),ORAL
     Route: 048
     Dates: start: 20071112
  6. XYREM [Suspect]
     Indication: SOMNOLENCE
     Dosage: (,2 IN 1 D) ,ORAL, 7 GM (3.5 GM,2 IN 1 D),ORAL
     Route: 048
     Dates: end: 20110401
  7. XYREM [Suspect]
     Indication: NARCOLEPSY
     Dosage: (,2 IN 1 D) ,ORAL, 7 GM (3.5 GM,2 IN 1 D),ORAL
     Route: 048
     Dates: end: 20110401
  8. PROPIONATE [Concomitant]
  9. CITALOPRAM [Concomitant]
  10. LORATADINE [Concomitant]

REACTIONS (5)
  - EROSIVE OESOPHAGITIS [None]
  - GASTROOESOPHAGEAL SPHINCTER INSUFFICIENCY [None]
  - OESOPHAGEAL DISORDER [None]
  - HIATUS HERNIA [None]
  - PNEUMONIA [None]
